FAERS Safety Report 9725188 (Version 2)
Quarter: 2013Q4

REPORT INFORMATION
  Report Type: Spontaneous
  Country: US (occurrence: US)
  Receive Date: 20131203
  Receipt Date: 20131203
  Transmission Date: 20140711
  Serious: Yes (Other)
  Sender: FDA-Public Use
  Company Number: US-JNJFOC-2010011221

PATIENT
  Age: 2 Year
  Sex: Male
  Weight: 16.78 kg

DRUGS (15)
  1. CHILDREN^S ZYRTEC PERFECT MEASURE SUGAR-FREE DYE-FREE ALLERGY SYRUP [Suspect]
     Route: 048
  2. CHILDREN^S ZYRTEC PERFECT MEASURE SUGAR-FREE DYE-FREE ALLERGY SYRUP [Suspect]
     Indication: PRODUCT USED FOR UNKNOWN INDICATION
     Dosage: DAILY DOSE TEXT: UNKNOWN
     Route: 048
  3. CONCENTRATED TYLENOL INFANTS DYE-FREE CHERRY [Suspect]
     Route: 065
  4. CONCENTRATED TYLENOL INFANTS DYE-FREE CHERRY [Suspect]
     Indication: PRODUCT USED FOR UNKNOWN INDICATION
     Route: 065
  5. CHILDRENS MOTRIN GRAPE [Suspect]
     Route: 048
  6. CHILDRENS MOTRIN GRAPE [Suspect]
     Indication: PRODUCT USED FOR UNKNOWN INDICATION
     Route: 048
  7. CONCENTRATED TYLENOL INFANTS DYE-FREE CHERRY [Suspect]
     Route: 048
  8. CONCENTRATED TYLENOL INFANTS DYE-FREE CHERRY [Suspect]
     Indication: PRODUCT USED FOR UNKNOWN INDICATION
     Dosage: DAILY DOSE TEXT: UNKNOWN
     Route: 048
  9. CONCENTRATED TYLENOL INFANTS GRAPE [Suspect]
     Route: 048
  10. CONCENTRATED TYLENOL INFANTS GRAPE [Suspect]
     Indication: PRODUCT USED FOR UNKNOWN INDICATION
     Dosage: DAILY DOSE TEXT: UNKNOWN
     Route: 048
  11. CHILDREN^S TYLENOL LIQUID VERY BERRY STRAWBERRY [Suspect]
     Indication: PYREXIA
     Dosage: DAILY DOSE TEXT: 1 TEASPOONFUL EVERY 4-6 HOURS AS NEEDED
     Route: 048
  12. CHILDREN^S TYLENOL LIQUID VERY BERRY STRAWBERRY [Suspect]
     Indication: PAIN
     Dosage: DAILY DOSE TEXT: 1 TEASPOONFUL EVERY 4-6 HOURS AS NEEDED
     Route: 048
  13. CHILDRENS MOTRIN BERRY ORAL [Suspect]
     Route: 048
  14. CHILDRENS MOTRIN BERRY ORAL [Suspect]
     Indication: PAIN
     Dosage: DAILY DOSE TEXT: EVERY 4-6 HOURS AS NEEDED
     Route: 048
  15. CEFDINIR [Concomitant]
     Indication: PROPHYLAXIS
     Route: 065
     Dates: start: 20100503

REACTIONS (5)
  - Dyspnoea [Recovered/Resolved]
  - Adverse event [Unknown]
  - Wheezing [Recovered/Resolved]
  - Wrong patient received medication [Unknown]
  - Product quality issue [Unknown]
